FAERS Safety Report 9699894 (Version 1)
Quarter: 2013Q4

REPORT INFORMATION
  Report Type: Spontaneous
  Country: JP (occurrence: JP)
  Receive Date: 20131121
  Receipt Date: 20131121
  Transmission Date: 20140711
  Serious: Yes (Other)
  Sender: FDA-Public Use
  Company Number: PHHY2013JP131015

PATIENT
  Age: 77 Year
  Sex: Male
  Weight: 55 kg

DRUGS (7)
  1. SODIUM CHLORIDE [Suspect]
     Dosage: 500 ML, BID
     Route: 042
  2. DEXAMETHASONE [Suspect]
     Dosage: 8 MG, PER DAY
     Route: 042
  3. SODIUM BICARBONATE [Suspect]
     Dosage: 80 MMOL/L, PER DAY
     Route: 042
  4. SOLDEM 3A [Suspect]
     Route: 042
  5. BORTEZOMIB [Concomitant]
     Dosage: 1.3 MG/M2, QW
     Route: 042
  6. ELCATONIN [Concomitant]
     Dosage: 40 U, PER DAY
     Route: 042
  7. ZOLEDRONIC ACID [Concomitant]
     Dosage: 4 MG, QW
     Route: 042

REACTIONS (2)
  - Hypernatraemia [Recovered/Resolved]
  - Hyperchloraemia [Recovered/Resolved]
